FAERS Safety Report 14546580 (Version 3)
Quarter: 2018Q2

REPORT INFORMATION
  Report Type: Spontaneous
  Country: US (occurrence: US)
  Receive Date: 20180219
  Receipt Date: 20180614
  Transmission Date: 20180711
  Serious: Yes (Other)
  Sender: FDA-Public Use
  Company Number: US-BAUSCH-BL-2018-004375

PATIENT
  Age: 61 Year
  Sex: Female
  Weight: 86.26 kg

DRUGS (2)
  1. XIFAXAN [Suspect]
     Active Substance: RIFAXIMIN
     Indication: HEPATIC CIRRHOSIS
     Route: 048
     Dates: start: 2016, end: 20180411
  2. LACTULOSE. [Concomitant]
     Active Substance: LACTULOSE
     Indication: HEPATIC CIRRHOSIS
     Dosage: AS NEEDED

REACTIONS (4)
  - Mental impairment [Recovered/Resolved]
  - Ammonia abnormal [Recovered/Resolved]
  - Ill-defined disorder [Recovered/Resolved]
  - Liver transplant [Recovered/Resolved]

NARRATIVE: CASE EVENT DATE: 2018
